FAERS Safety Report 5759978-6 (Version None)
Quarter: 2008Q2

REPORT INFORMATION
  Report Type: 
  Country: None (occurrence: None)
  Receive Date: 20080605
  Receipt Date: 20080526
  Transmission Date: 20081010
  Serious: Yes (Death)
  Sender: FDA-Public Use
  Company Number: GB-GENENTECH-262060

PATIENT
  Age: 61 Year
  Sex: Female

DRUGS (2)
  1. MABTHERA [Suspect]
     Indication: WEGENER'S GRANULOMATOSIS
  2. CYCLOPHOSPHAMIDE [Suspect]
     Indication: DRUG USE FOR UNKNOWN INDICATION
     Route: 042

REACTIONS (4)
  - CEREBRAL HAEMORRHAGE [None]
  - DEATH [None]
  - PULMONARY OEDEMA [None]
  - STAPHYLOCOCCAL SEPSIS [None]
